FAERS Safety Report 23974057 (Version 9)
Quarter: 2024Q4

REPORT INFORMATION
  Report Type: Report from Study
  Country: ES (occurrence: ES)
  Receive Date: 20240613
  Receipt Date: 20241005
  Transmission Date: 20250115
  Serious: Yes (Other)
  Sender: ABBVIE
  Company Number: ES-ABBVIE-5733268

PATIENT
  Sex: Male

DRUGS (5)
  1. CARBIDOPA\LEVODOPA [Suspect]
     Active Substance: CARBIDOPA\LEVODOPA
     Indication: Parkinson^s disease
     Route: 050
     Dates: start: 20230720, end: 202406
  2. CARBIDOPA\LEVODOPA [Suspect]
     Active Substance: CARBIDOPA\LEVODOPA
     Dosage: INCREASE THE CONTINUOUS DOSE BY 0.1 ML/H
     Route: 050
     Dates: start: 202406
  3. CARBIDOPA\LEVODOPA [Suspect]
     Active Substance: CARBIDOPA\LEVODOPA
     Dosage: DOSAGE ADJUSTMENT
     Route: 050
     Dates: start: 202406, end: 202406
  4. LORAZEPAM [Concomitant]
     Active Substance: LORAZEPAM
     Indication: Product used for unknown indication
     Route: 065
     Dates: start: 2024
  5. CARBIDOPA\LEVODOPA [Concomitant]
     Active Substance: CARBIDOPA\LEVODOPA
     Indication: Product used for unknown indication
     Dosage: FREQUENCY TEXT: BEFORE BED
     Route: 065
     Dates: start: 2024

REACTIONS (25)
  - Spinal stenosis [Recovered/Resolved]
  - Feeling abnormal [Unknown]
  - Nausea [Recovered/Resolved]
  - Muscular weakness [Not Recovered/Not Resolved]
  - Musculoskeletal stiffness [Recovered/Resolved]
  - Back disorder [Recovered/Resolved]
  - Unevaluable event [Unknown]
  - Mental disorder [Unknown]
  - Musculoskeletal stiffness [Not Recovered/Not Resolved]
  - Movement disorder [Not Recovered/Not Resolved]
  - Hypersexuality [Unknown]
  - Back pain [Not Recovered/Not Resolved]
  - Arthralgia [Recovered/Resolved]
  - Intervertebral disc protrusion [Unknown]
  - Therapeutic product effect incomplete [Not Recovered/Not Resolved]
  - Arthralgia [Not Recovered/Not Resolved]
  - Gait inability [Not Recovered/Not Resolved]
  - Headache [Unknown]
  - Asthenia [Recovered/Resolved]
  - Musculoskeletal pain [Not Recovered/Not Resolved]
  - Asthenia [Not Recovered/Not Resolved]
  - Intentional product misuse [Unknown]
  - Wound [Unknown]
  - Back pain [Unknown]
  - Loss of personal independence in daily activities [Unknown]

NARRATIVE: CASE EVENT DATE: 20240101
